FAERS Safety Report 10330657 (Version 1)
Quarter: 2014Q3

REPORT INFORMATION
  Report Type: Spontaneous
  Country: US (occurrence: None)
  Receive Date: 20140718
  Receipt Date: 20140718
  Transmission Date: 20150326
  Serious: No
  Sender: FDA-Public Use
  Company Number: None

PATIENT
  Age: 57 Year
  Sex: Male
  Weight: 77.11 kg

DRUGS (2)
  1. ZOLPIDEM TARTRATE 6.25 MG SANDOZ [Suspect]
     Active Substance: ZOLPIDEM TARTRATE
     Indication: SLEEP DISORDER
     Dosage: 1 PILL
     Route: 048
     Dates: start: 20140415, end: 20140716
  2. ZOLPIDEM TARTRATE 12.5 MG SANDOZ [Suspect]
     Active Substance: ZOLPIDEM TARTRATE
     Indication: SLEEP DISORDER
     Dosage: 1 PILL
     Route: 048
     Dates: start: 20140415, end: 20140716

REACTIONS (3)
  - Product formulation issue [None]
  - Product substitution issue [None]
  - Sleep disorder [None]

NARRATIVE: CASE EVENT DATE: 20140716
